FAERS Safety Report 8126626 (Version 2)
Quarter: 2013Q3

REPORT INFORMATION
  Report Type: Spontaneous
  Country: US (occurrence: US)
  Receive Date: 20110908
  Receipt Date: 20130828
  Transmission Date: 20140515
  Serious: Yes (Hospitalization)
  Sender: FDA-Public Use
  Company Number: US-GLAXOSMITHKLINE-A0939707A

PATIENT
  Age: 64 Year
  Sex: Female

DRUGS (1)
  1. ROSIGLITAZONE MALEATE [Suspect]
     Indication: DIABETES MELLITUS
     Route: 048

REACTIONS (4)
  - Cardiac failure congestive [Unknown]
  - Atrial fibrillation [Unknown]
  - Pericardial effusion [Unknown]
  - Cardiovascular disorder [Unknown]
